FAERS Safety Report 15211486 (Version 1)
Quarter: 2018Q3

REPORT INFORMATION
  Report Type: Spontaneous
  Country: US (occurrence: US)
  Receive Date: 20180702
  Receipt Date: 20180702
  Transmission Date: 20181010
  Serious: No
  Sender: FDA-Public Use
  Company Number: None

PATIENT
  Age: 22 Year
  Sex: Female
  Weight: 58.5 kg

DRUGS (1)
  1. MISOPROSTOL. [Suspect]
     Active Substance: MISOPROSTOL
     Indication: PRODUCT USED FOR UNKNOWN INDICATION
     Dosage: ?          OTHER STRENGTH:MCG;QUANTITY:2 TABLET(S);OTHER ROUTE:TAKEN BY MOUTH AND VAGINAL?
     Dates: start: 20180701, end: 20180702

REACTIONS (6)
  - Constipation [None]
  - Diarrhoea [None]
  - Abdominal pain upper [None]
  - Menorrhagia [None]
  - Dysmenorrhoea [None]
  - Flatulence [None]

NARRATIVE: CASE EVENT DATE: 20180702
